FAERS Safety Report 6520885-2 (Version None)
Quarter: 2009Q4

REPORT INFORMATION
  Report Type: 
  Country: None (occurrence: None)
  Receive Date: 20091229
  Receipt Date: 20091222
  Transmission Date: 20100525
  Serious: Yes (Life-Threatening, Other)
  Sender: FDA-Public Use
  Company Number: JP-JNJFOC-20091205124

PATIENT
  Age: 51 Year
  Sex: Male

DRUGS (8)
  1. RISPERDAL [Suspect]
     Indication: SCHIZOPHRENIA
     Route: 048
  2. RISPERDAL [Suspect]
     Route: 048
  3. FLUNITRAZEPAM [Concomitant]
     Indication: INSOMNIA
     Route: 048
  4. LEVOTOMIN [Concomitant]
     Indication: RESTLESSNESS
     Route: 048
  5. LEVOTOMIN [Concomitant]
     Route: 048
  6. LEVOTOMIN [Concomitant]
     Indication: INSOMNIA
     Route: 048
  7. LEVOTOMIN [Concomitant]
     Route: 048
  8. BENZALIN [Concomitant]
     Indication: INSOMNIA
     Route: 048

REACTIONS (5)
  - ALANINE AMINOTRANSFERASE INCREASED [None]
  - ASPARTATE AMINOTRANSFERASE INCREASED [None]
  - BLOOD CREATININE INCREASED [None]
  - BLOOD UREA INCREASED [None]
  - NEUROLEPTIC MALIGNANT SYNDROME [None]
